FAERS Safety Report 9631020 (Version 1)
Quarter: 2013Q4

REPORT INFORMATION
  Report Type: Spontaneous
  Country: US (occurrence: US)
  Receive Date: 20131018
  Receipt Date: 20131018
  Transmission Date: 20140711
  Serious: Yes (Other)
  Sender: FDA-Public Use
  Company Number: US-009507513-1310USA007725

PATIENT
  Age: 75 Year
  Sex: Female

DRUGS (1)
  1. EMEND [Suspect]
     Indication: OVARIAN CANCER
     Dosage: 150 MG, UNK
     Route: 042
     Dates: start: 20131009, end: 20131009

REACTIONS (1)
  - Hypersensitivity [Unknown]
